FAERS Safety Report 8551209-7 (Version None)
Quarter: 2012Q3

REPORT INFORMATION
  Report Type: 
  Country: None (occurrence: None)
  Receive Date: 20120730
  Receipt Date: 20120719
  Transmission Date: 20120928
  Serious: Yes (Hospitalization)
  Sender: FDA-Public Use
  Company Number: US-ELI_LILLY_AND_COMPANY-US201012006625

PATIENT
  Sex: Female

DRUGS (4)
  1. FORTEO [Suspect]
     Dosage: 20 UG, QD
     Route: 065
  2. FORTEO [Suspect]
     Indication: OSTEOPOROSIS
     Dosage: 20 UG, DAILY (1/D)
     Dates: start: 20101221, end: 20110101
  3. FORTEO [Suspect]
     Dosage: 20 UG, QD
  4. FORTEO [Suspect]
     Dosage: 20 UG, QD
     Dates: start: 20110201

REACTIONS (20)
  - JOINT SWELLING [None]
  - SPINAL DISORDER [None]
  - MUSCLE SPASMS [None]
  - BONE PAIN [None]
  - ARTHRALGIA [None]
  - FEELING ABNORMAL [None]
  - SCOLIOSIS [None]
  - LYMPHOMA [None]
  - MUSCULAR WEAKNESS [None]
  - MEMORY IMPAIRMENT [None]
  - FEELING COLD [None]
  - PAIN [None]
  - PAIN IN EXTREMITY [None]
  - RESTLESS LEGS SYNDROME [None]
  - CHILLS [None]
  - OEDEMA PERIPHERAL [None]
  - HERNIA [None]
  - BLADDER DISORDER [None]
  - BACK PAIN [None]
  - INJECTION SITE PAIN [None]
